FAERS Safety Report 4890492-6 (Version None)
Quarter: 2005Q4

REPORT INFORMATION
  Report Type: 
  Country: None (occurrence: None)
  Receive Date: 20051220
  Receipt Date: 20051115
  Transmission Date: 20060501
  Serious: Yes (Other)
  Sender: FDA-Public Use
  Company Number: 425027

PATIENT
  Age: 62 Year
  Sex: Female

DRUGS (4)
  1. BONIVA [Suspect]
     Indication: OSTEOPOROSIS
     Dosage: 150MG  1 PER MONTH  ORAL
     Route: 048
     Dates: start: 20050826
  2. VITAMINS NOS (MULTIVITAMIN NOS) [Concomitant]
  3. ARTICHOKE LEAF (CYNARA) [Concomitant]
  4. GARLIC (ALLIUM SATIVUM) [Concomitant]

REACTIONS (2)
  - ALANINE AMINOTRANSFERASE INCREASED [None]
  - ASPARTATE AMINOTRANSFERASE INCREASED [None]
